FAERS Safety Report 24993497 (Version 1)
Quarter: 2025Q1

REPORT INFORMATION
  Report Type: Spontaneous
  Country: GB (occurrence: GB)
  Receive Date: 20250221
  Receipt Date: 20250221
  Transmission Date: 20250409
  Serious: Yes (Other)
  Sender: TEVA
  Company Number: None

PATIENT
  Sex: Female

DRUGS (7)
  1. ARSENIC TRIOXIDE [Suspect]
     Active Substance: ARSENIC TRIOXIDE
     Indication: Acute promyelocytic leukaemia
     Route: 065
  2. FIBRINOGEN [Concomitant]
     Active Substance: FIBRINOGEN HUMAN
     Indication: Adverse drug reaction
  3. FRESH FROZEN PLASMA [Concomitant]
     Active Substance: HUMAN PLASMA
     Indication: Adverse drug reaction
  4. TRETINOIN [Suspect]
     Active Substance: TRETINOIN
     Indication: Acute promyelocytic leukaemia
     Route: 048
  5. DEXAMETHASONE [Concomitant]
     Active Substance: DEXAMETHASONE
     Indication: Differentiation syndrome
  6. ENOXAPARIN [Concomitant]
     Active Substance: ENOXAPARIN
     Indication: Cerebral venous thrombosis
     Route: 058
  7. APIXABAN [Concomitant]
     Active Substance: APIXABAN
     Indication: Cerebral venous thrombosis

REACTIONS (10)
  - Cerebral venous thrombosis [Unknown]
  - Neuropathy peripheral [Not Recovered/Not Resolved]
  - Balance disorder [Unknown]
  - Myalgia [Recovered/Resolved]
  - Differentiation syndrome [Recovered/Resolved]
  - Tinnitus [Unknown]
  - Headache [Unknown]
  - Hypervolaemia [Recovered/Resolved]
  - Peripheral sensorimotor neuropathy [Not Recovered/Not Resolved]
  - Gait disturbance [Not Recovered/Not Resolved]
